FAERS Safety Report 8647841 (Version 3)
Quarter: 2014Q2

REPORT INFORMATION
  Report Type: Spontaneous
  Country: JP (occurrence: JP)
  Receive Date: 20120703
  Receipt Date: 20131017
  Transmission Date: 20141212
  Serious: Yes (Hospitalization, Other)
  Sender: FDA-Public Use
  Company Number: JP-PFIZER INC-2012154141

PATIENT
  Age: 78 Year
  Sex: Male
  Weight: 57 kg

DRUGS (3)
  1. HYDROCORTISONE SODIUM SUCCINATE [Suspect]
     Indication: ADRENAL INSUFFICIENCY
     Dosage: 200 MG, 4X/DAY
  2. HYDROCORTISONE SODIUM SUCCINATE [Suspect]
     Indication: HYPOPHYSITIS
  3. SULFONYLUREA [Concomitant]
     Indication: TYPE 2 DIABETES MELLITUS
     Dosage: UNK
     Route: 048

REACTIONS (1)
  - Diabetes insipidus [Unknown]
